FAERS Safety Report 8297420-4 (Version None)
Quarter: 2012Q2

REPORT INFORMATION
  Report Type: 
  Country: None (occurrence: None)
  Receive Date: 20120419
  Receipt Date: 20120416
  Transmission Date: 20120825
  Serious: Yes (Other)
  Sender: FDA-Public Use
  Company Number: GB-PFIZER INC-2012093349

PATIENT
  Age: 58 Year
  Sex: Male
  Weight: 75 kg

DRUGS (8)
  1. TAMSULOSIN HCL [Concomitant]
     Dosage: UNK
  2. TRIMETHOPRIM [Concomitant]
     Dosage: UNK
  3. CIPROFLOXACIN [Concomitant]
     Dosage: UNK
  4. NAPROXEN [Concomitant]
     Dosage: UNK
  5. CO-DYDRAMOL [Concomitant]
     Dosage: UNK
  6. POLYETHYLENE GLYCOL [Concomitant]
     Dosage: UNK
  7. PYRIDOXINE HCL [Concomitant]
     Dosage: UNK
  8. VARENICLINE TARTRATE [Suspect]
     Indication: SMOKING CESSATION THERAPY
     Dosage: 1MG TWICE A DAY AFTER TITRATION
     Route: 048
     Dates: start: 20110216, end: 20110416

REACTIONS (1)
  - RETROPERITONEAL FIBROSIS [None]
